FAERS Safety Report 7767954-7 (Version None)
Quarter: 2011Q3

REPORT INFORMATION
  Report Type: 
  Country: None (occurrence: None)
  Receive Date: 20110922
  Receipt Date: 20110418
  Transmission Date: 20111222
  Serious: Yes (Other)
  Sender: FDA-Public Use
  Company Number: US-ASTRAZENECA-2007UW05881

PATIENT
  Age: 63 Year
  Sex: Male
  Weight: 111.1 kg

DRUGS (17)
  1. SEROQUEL [Suspect]
     Route: 048
     Dates: start: 20050827
  2. WELLBUTRIN [Concomitant]
  3. ABILIFY [Concomitant]
     Dosage: 10 MG TO 20 MG
     Dates: start: 20050101
  4. DEPAKOTE [Concomitant]
  5. SEROQUEL [Suspect]
     Route: 048
     Dates: start: 20050827
  6. LUNESTA [Concomitant]
  7. PAXIL [Concomitant]
  8. ZONEGRAN [Concomitant]
  9. SEROQUEL [Suspect]
     Indication: SLEEP DISORDER
     Route: 048
     Dates: start: 20040108, end: 20051123
  10. KLONOPIN WAF [Concomitant]
     Indication: BIPOLAR DISORDER
     Dates: start: 20050629
  11. SYNTHROID [Concomitant]
     Indication: HYPOTHYROIDISM
     Dates: start: 20050730
  12. SEROQUEL [Suspect]
     Indication: BIPOLAR DISORDER
     Route: 048
     Dates: start: 20040108, end: 20051123
  13. TRAZODONE HYDROCHLORIDE [Concomitant]
     Dates: start: 20050804
  14. LEXAPRO [Concomitant]
     Dosage: 10 MG TO 20 MG
     Dates: start: 20050929
  15. ACTOS [Concomitant]
     Dates: start: 20060418
  16. PRILOSEC [Concomitant]
     Indication: GASTROOESOPHAGEAL REFLUX DISEASE
     Dates: start: 20050705
  17. CELEBREX [Concomitant]
     Indication: ARTHRITIS
     Dates: start: 20051115

REACTIONS (2)
  - PARKINSON'S DISEASE [None]
  - TYPE 2 DIABETES MELLITUS [None]
